FAERS Safety Report 9345152 (Version 1)
Quarter: 2013Q2

REPORT INFORMATION
  Report Type: Spontaneous
  Country: US (occurrence: US)
  Receive Date: 20130612
  Receipt Date: 20130612
  Transmission Date: 20140414
  Serious: No
  Sender: FDA-Public Use
  Company Number: US-009507513-1306USA004664

PATIENT
  Sex: Female

DRUGS (2)
  1. IMPLANON [Suspect]
     Indication: CONTRACEPTION
     Dosage: 1 ROD INSERTED FOR UP TO 3 YEARS
     Route: 059
     Dates: start: 200907, end: 201207
  2. IMPLANON [Suspect]
     Dosage: 1 ROD INSERTED FOR UP TO 3 YEARS
     Route: 059
     Dates: start: 201207, end: 20130610

REACTIONS (3)
  - Headache [Recovering/Resolving]
  - Pain in extremity [Recovering/Resolving]
  - Device breakage [Unknown]
